FAERS Safety Report 7299810-5 (Version None)
Quarter: 2011Q1

REPORT INFORMATION
  Report Type: 
  Country: None (occurrence: None)
  Receive Date: 20110217
  Receipt Date: 20110215
  Transmission Date: 20110831
  Serious: Yes (Other)
  Sender: FDA-Public Use
  Company Number: US-PFIZER INC-2011033740

PATIENT
  Sex: Male
  Weight: 77 kg

DRUGS (5)
  1. DIGOXIN [Concomitant]
     Dosage: UNK
  2. LIPITOR [Suspect]
     Indication: CARDIAC OPERATION
     Dosage: 80 MG, DAILY
     Route: 048
     Dates: end: 20100101
  3. TOPROL-XL [Concomitant]
     Dosage: UNK
  4. DIOVAN [Concomitant]
     Indication: HYPERTENSION
     Dosage: UNK
  5. LASIX [Concomitant]
     Dosage: UNK

REACTIONS (3)
  - CARDIAC DISORDER [None]
  - LIVER INJURY [None]
  - CARDIAC FAILURE [None]
